FAERS Safety Report 22396475 (Version 3)
Quarter: 2023Q2

REPORT INFORMATION
  Report Type: Spontaneous
  Country: US (occurrence: US)
  Receive Date: 20230601
  Receipt Date: 20230607
  Transmission Date: 20230722
  Serious: No
  Sender: FDA-Public Use
  Company Number: US-APIL-2315687US

PATIENT
  Sex: Female

DRUGS (2)
  1. DURYSTA [Suspect]
     Active Substance: BIMATOPROST
     Indication: Open angle glaucoma
     Dosage: FREQUENCY TEXT: ONE TIME
     Route: 031
     Dates: start: 202212, end: 202212
  2. DURYSTA [Suspect]
     Active Substance: BIMATOPROST

REACTIONS (9)
  - Oedema [Unknown]
  - Eye pain [Unknown]
  - Corneal cyst [Unknown]
  - Eye pruritus [Unknown]
  - Intraocular pressure increased [Unknown]
  - Ocular hyperaemia [Unknown]
  - Ocular hyperaemia [Unknown]
  - Eye pain [Unknown]
  - Eye pruritus [Unknown]

NARRATIVE: CASE EVENT DATE: 20230201
